FAERS Safety Report 7495441-2 (Version None)
Quarter: 2011Q2

REPORT INFORMATION
  Report Type: 
  Country: None (occurrence: None)
  Receive Date: 20110513
  Receipt Date: 20110504
  Transmission Date: 20111010
  Serious: Yes (Other)
  Sender: FDA-Public Use
  Company Number: 2011SP015287

PATIENT
  Age: 40 Year
  Sex: Female

DRUGS (2)
  1. IMPLANON [Suspect]
  2. IMPLANON [Suspect]
     Indication: CONTRACEPTION
     Dosage: 1 DF; SC
     Route: 058
     Dates: start: 20110122, end: 20110301

REACTIONS (2)
  - DEVICE EXPULSION [None]
  - IMPLANT SITE NECROSIS [None]
